FAERS Safety Report 19415798 (Version 2)
Quarter: 2021Q2

REPORT INFORMATION
  Report Type: Report from Study
  Country: CO (occurrence: CO)
  Receive Date: 20210615
  Receipt Date: 20210622
  Transmission Date: 20210717
  Serious: Yes (Hospitalization)
  Sender: FDA-Public Use
  Company Number: CO-JNJFOC-20210618981

PATIENT
  Age: 45 Year
  Sex: Male
  Weight: 65 kg

DRUGS (6)
  1. INVEGA SUSTENNA [Suspect]
     Active Substance: PALIPERIDONE PALMITATE
  2. INVEGA SUSTENNA [Suspect]
     Active Substance: PALIPERIDONE PALMITATE
  3. ALPRAZOLAM. [Concomitant]
     Active Substance: ALPRAZOLAM
  4. CLOZAPINE. [Concomitant]
     Active Substance: CLOZAPINE
  5. INVEGA SUSTENNA [Suspect]
     Active Substance: PALIPERIDONE PALMITATE
     Indication: SCHIZOPHRENIA
     Dosage: DAY?0
     Route: 030
     Dates: start: 20210414
  6. FLUOXETINE [Concomitant]
     Active Substance: FLUOXETINE HYDROCHLORIDE

REACTIONS (3)
  - Illness [Recovering/Resolving]
  - Anxiety [Unknown]
  - Restlessness [Unknown]

NARRATIVE: CASE EVENT DATE: 2021
